FAERS Safety Report 8227143-9 (Version None)
Quarter: 2012Q1

REPORT INFORMATION
  Report Type: 
  Country: None (occurrence: None)
  Receive Date: 20120322
  Receipt Date: 20120312
  Transmission Date: 20120608
  Serious: Yes (Other)
  Sender: FDA-Public Use
  Company Number: AU-JNJFOC-20120306748

PATIENT
  Sex: Female

DRUGS (1)
  1. REMICADE [Suspect]
     Indication: CROHN'S DISEASE
     Dosage: CEASED APPROXIMATELY 6 MONTHS AGO. HAD BEEN ON REMICADE FOR APPROX 6-8
     Route: 042
     Dates: start: 20110201, end: 20110901

REACTIONS (1)
  - RHEUMATOID ARTHRITIS [None]
